FAERS Safety Report 11330528 (Version 1)
Quarter: 2015Q3

REPORT INFORMATION
  Report Type: Spontaneous
  Country: US (occurrence: None)
  Receive Date: 20150730
  Receipt Date: 20150730
  Transmission Date: 20151125
  Serious: No
  Sender: FDA-Public Use
  Company Number: None

PATIENT
  Age: 45 Year
  Sex: Female
  Weight: 55.79 kg

DRUGS (2)
  1. LISINIPROL [Concomitant]
  2. MIRENA [Suspect]
     Active Substance: LEVONORGESTREL

REACTIONS (13)
  - Pain [None]
  - Insomnia [None]
  - Haemorrhage [None]
  - Rash [None]
  - Pain in jaw [None]
  - Muscle spasms [None]
  - Nausea [None]
  - Nipple pain [None]
  - Abdominal tenderness [None]
  - Breast pain [None]
  - Abdominal discomfort [None]
  - Vaginal haemorrhage [None]
  - Vertigo [None]

NARRATIVE: CASE EVENT DATE: 20150717
